FAERS Safety Report 4656930-9 (Version None)
Quarter: 2005Q2

REPORT INFORMATION
  Report Type: 
  Country: None (occurrence: None)
  Receive Date: 20050505
  Receipt Date: 20050427
  Transmission Date: 20051028
  Serious: Yes (Hospitalization)
  Sender: FDA-Public Use
  Company Number: 05P-163-0298648-00

PATIENT
  Age: 2 Year
  Sex: Female

DRUGS (1)
  1. OMNICEF [Suspect]
     Indication: OTITIS MEDIA
     Dosage: 1 IN 1 D, PER ORAL
     Route: 048
     Dates: start: 20050315, end: 20050325

REACTIONS (1)
  - SERUM SICKNESS [None]
